FAERS Safety Report 9107957 (Version 1)
Quarter: 2013Q1

REPORT INFORMATION
  Report Type: Spontaneous
  Country: GB (occurrence: GB)
  Receive Date: 20130221
  Receipt Date: 20130221
  Transmission Date: 20140127
  Serious: Yes (Other)
  Sender: FDA-Public Use
  Company Number: GB-PFIZER INC-2013064740

PATIENT
  Sex: Female

DRUGS (11)
  1. GABAPENTIN [Suspect]
     Indication: NEURALGIA
     Dosage: 300 MG, 3X/DAY
     Route: 048
     Dates: start: 20121114
  2. PREDNISOLONE [Concomitant]
  3. SYMBICORT [Concomitant]
  4. BRIMONIDINE [Concomitant]
  5. FLUTICASONE PROPIONATE [Concomitant]
  6. CETIRIZINE [Concomitant]
  7. CALCIUM [Concomitant]
  8. VITAMIN D3 [Concomitant]
  9. COD-LIVER OIL [Concomitant]
  10. PAROXETINE [Concomitant]
  11. SALAMOL [Concomitant]

REACTIONS (2)
  - Asthma [Recovering/Resolving]
  - Therapeutic response unexpected [Unknown]
